FAERS Safety Report 23678741 (Version 1)
Quarter: 2024Q1

REPORT INFORMATION
  Report Type: Spontaneous
  Country: GB (occurrence: GB)
  Receive Date: 20240327
  Receipt Date: 20240327
  Transmission Date: 20240410
  Serious: Yes (Other)
  Sender: FDA-Public Use
  Company Number: GB-Karo Pharma-2154923

PATIENT
  Age: 45 Year
  Sex: Female
  Weight: 64 kg

DRUGS (7)
  1. TERBINAFINE [Suspect]
     Active Substance: TERBINAFINE
     Indication: Ill-defined disorder
     Dates: start: 20240321
  2. SERTRALINE [Concomitant]
     Active Substance: SERTRALINE HYDROCHLORIDE
     Dates: start: 20231214
  3. ESTRADIOL [Concomitant]
     Active Substance: ESTRADIOL
     Dates: start: 20221105
  4. TERBINAFINE [Concomitant]
     Active Substance: TERBINAFINE
     Dates: start: 20240224, end: 20240315
  5. CLONIDINE [Concomitant]
     Active Substance: CLONIDINE
     Dates: start: 20230515
  6. UTROGESTAN [Concomitant]
     Active Substance: PROGESTERONE
     Dates: start: 20221105
  7. CARBIMAZOLE [Concomitant]
     Active Substance: CARBIMAZOLE
     Dates: start: 20221105

REACTIONS (1)
  - Liver function test abnormal [Recovering/Resolving]
